FAERS Safety Report 20045200 (Version 1)
Quarter: 2021Q4

REPORT INFORMATION
  Report Type: Spontaneous
  Country: FR (occurrence: FR)
  Receive Date: 20211108
  Receipt Date: 20211108
  Transmission Date: 20220303
  Serious: Yes (Death)
  Sender: FDA-Public Use
  Company Number: None

PATIENT
  Age: 62 Year
  Sex: Female
  Weight: 62 kg

DRUGS (16)
  1. APIXABAN [Interacting]
     Active Substance: APIXABAN
     Indication: Thrombosis prophylaxis
     Dosage: 10 MILLIGRAM, QD
     Route: 048
     Dates: end: 20210711
  2. HEPARIN SODIUM [Interacting]
     Active Substance: HEPARIN SODIUM
     Indication: Thrombosis prophylaxis
     Dosage: INCONNUE
     Route: 042
     Dates: start: 202107, end: 20210714
  3. KAYEXALATE [Concomitant]
     Active Substance: SODIUM POLYSTYRENE SULFONATE
     Dosage: UNK
     Route: 048
     Dates: start: 202107, end: 202107
  4. MEROPENEM [Concomitant]
     Active Substance: MEROPENEM
     Dosage: UNK
     Route: 065
     Dates: start: 202107, end: 202107
  5. ORACILLINE                         /00001801/ [Concomitant]
     Dosage: 2 MEGA-INTERNATIONAL UNIT, QD
     Route: 048
     Dates: end: 202107
  6. NORADRENALINE                      /00127501/ [Concomitant]
     Dosage: UNK
     Route: 042
     Dates: start: 202107, end: 20210714
  7. SIMVASTATIN [Concomitant]
     Active Substance: SIMVASTATIN
     Dosage: 40 MILLIGRAM, QD
     Route: 048
     Dates: end: 202107
  8. SPIRONOLACTONE [Concomitant]
     Active Substance: SPIRONOLACTONE
     Dosage: 50 MILLIGRAM, QD
     Route: 048
     Dates: end: 202107
  9. NITROFURANTOIN [Concomitant]
     Active Substance: NITROFURANTOIN
     Dosage: 100 MILLIGRAM, QD
     Route: 048
     Dates: start: 20210709, end: 20210709
  10. CORDARONE [Concomitant]
     Active Substance: AMIODARONE HYDROCHLORIDE
     Dosage: INCONNUE
     Route: 065
     Dates: start: 202107, end: 202107
  11. CALCIUM PHOSPHATE, DIBASIC, ANHYDROUS\MAGNESIUM GLYCEROPHOSPHATE\PHOSP [Concomitant]
     Active Substance: CALCIUM PHOSPHATE, DIBASIC, ANHYDROUS\MAGNESIUM GLYCEROPHOSPHATE\PHOSPHORIC ACID\SODIUM PHOSPHATE, D
     Dosage: 200 GTT DROPS, QD
     Route: 048
     Dates: end: 202107
  12. FUROSEMIDE [Concomitant]
     Active Substance: FUROSEMIDE
     Dosage: 20 MILLIGRAM, QD
     Route: 048
     Dates: end: 202107
  13. RAMIPRIL [Concomitant]
     Active Substance: RAMIPRIL
     Dosage: 2.5 MILLIGRAM, QD
     Route: 048
     Dates: end: 202107
  14. AMIKLIN                            /00391001/ [Concomitant]
     Dosage: INCONNUE
     Route: 065
     Dates: start: 202107, end: 202107
  15. ACETYLCYSTEINE [Concomitant]
     Active Substance: ACETYLCYSTEINE
     Dosage: INCONNUE
     Route: 065
     Dates: start: 20210706, end: 20210709
  16. PRINCI B                           /01262901/ [Concomitant]
     Dosage: 2 DOSAGE FORM, QD
     Route: 048
     Dates: end: 202107

REACTIONS (2)
  - Shock haemorrhagic [Fatal]
  - Labelled drug-drug interaction medication error [Unknown]

NARRATIVE: CASE EVENT DATE: 20210712
